FAERS Safety Report 16455687 (Version 1)
Quarter: 2019Q2

REPORT INFORMATION
  Report Type: Spontaneous
  Country: US (occurrence: US)
  Receive Date: 20190620
  Receipt Date: 20190620
  Transmission Date: 20190711
  Serious: No
  Sender: FDA-Public Use
  Company Number: US-AMGEN-USASP2019097190

PATIENT
  Sex: Female

DRUGS (1)
  1. ENBREL [Suspect]
     Active Substance: ETANERCEPT
     Indication: PEMPHIGUS
     Dosage: 50 MILLIGRAM, QWK
     Route: 058

REACTIONS (2)
  - Nasopharyngitis [Unknown]
  - Infection [Unknown]
